FAERS Safety Report 13336271 (Version 2)
Quarter: 2017Q2

REPORT INFORMATION
  Report Type: Spontaneous
  Country: BR (occurrence: BR)
  Receive Date: 20170314
  Receipt Date: 20170412
  Transmission Date: 20170830
  Serious: Yes (Hospitalization)
  Sender: FDA-Public Use
  Company Number: BR-BIOMARINAP-BR-2017-113144

PATIENT
  Sex: Female
  Weight: 41.3 kg

DRUGS (1)
  1. NAGLAZYME [Suspect]
     Active Substance: GALSULFASE
     Indication: MUCOPOLYSACCHARIDOSIS VI
     Dosage: 40 MG, UNK
     Route: 042
     Dates: start: 20070226

REACTIONS (2)
  - Bronchial obstruction [Recovered/Resolved]
  - Pneumonia [Recovered/Resolved]
